FAERS Safety Report 4359611-4 (Version None)
Quarter: 2004Q2

REPORT INFORMATION
  Report Type: 
  Country: None (occurrence: None)
  Receive Date: 20040512
  Receipt Date: 20040427
  Transmission Date: 20050107
  Serious: Yes (Death, Hospitalization, Disabling)
  Sender: FDA-Public Use
  Company Number: EWC021032741

PATIENT
  Age: 78 Year
  Sex: Female

DRUGS (8)
  1. GEMCITABINE HYDROCHLORIDE IV (GEMCITABINE) [Suspect]
     Indication: NON-SMALL CELL LUNG CANCER
     Dosage: 2125 MG/2 OTHER
     Route: 050
     Dates: start: 20020826
  2. ISIS 3521 (LY900003) [Suspect]
     Indication: NON-SMALL CELL LUNG CANCER
     Dosage: 175 MG/1 DAY
     Dates: start: 20020826
  3. CISPLATIN [Suspect]
     Indication: NON-SMALL CELL LUNG CANCER
     Dosage: 70 MG/1 OTHER
     Route: 050
     Dates: start: 20020826
  4. POTASSIUM [Concomitant]
  5. LACTULOSE [Concomitant]
  6. EPREX [Concomitant]
  7. AUGMENTIN [Concomitant]
  8. INNOHEP [Concomitant]

REACTIONS (5)
  - BLOOD POTASSIUM ABNORMAL [None]
  - HAEMOGLOBIN DECREASED [None]
  - LOBAR PNEUMONIA [None]
  - SHOCK [None]
  - THROMBOCYTOPENIA [None]
